FAERS Safety Report 25063651 (Version 1)
Quarter: 2025Q1

REPORT INFORMATION
  Report Type: Spontaneous
  Country: US (occurrence: None)
  Receive Date: 20250310
  Receipt Date: 20250310
  Transmission Date: 20250408
  Serious: No
  Sender: FDA-CTU
  Company Number: None

PATIENT
  Age: 62 Year
  Sex: Male

DRUGS (1)
  1. METOLAZONE [Suspect]
     Active Substance: METOLAZONE

REACTIONS (1)
  - Hypokalaemia [None]

NARRATIVE: CASE EVENT DATE: 20240818
